FAERS Safety Report 18523668 (Version 1)
Quarter: 2020Q4

REPORT INFORMATION
  Report Type: Other
  Country: GB (occurrence: GB)
  Receive Date: 20201119
  Receipt Date: 20201119
  Transmission Date: 20210114
  Serious: No
  Sender: FDA-Public Use
  Company Number: GB-LUPIN PHARMACEUTICALS INC.-2020-05495

PATIENT
  Age: 30 Year
  Sex: Female
  Weight: 60.32 kg

DRUGS (1)
  1. SERTRALINE HYDROCHLORIDE. [Suspect]
     Active Substance: SERTRALINE HYDROCHLORIDE
     Indication: DEPRESSION
     Dosage: 50 MILLIGRAM, QD
     Route: 048
     Dates: start: 20200812, end: 20200816

REACTIONS (4)
  - Female sexual dysfunction [Not Recovered/Not Resolved]
  - Abnormal loss of weight [Recovering/Resolving]
  - Decreased appetite [Not Recovered/Not Resolved]
  - Anorgasmia [Unknown]

NARRATIVE: CASE EVENT DATE: 202008
